FAERS Safety Report 10094868 (Version 7)
Quarter: 2018Q3

REPORT INFORMATION
  Report Type: Report from Study
  Country: GB (occurrence: GB)
  Receive Date: 20140422
  Receipt Date: 20180717
  Transmission Date: 20181010
  Serious: Yes (Hospitalization, Other)
  Sender: FDA-Public Use
  Company Number: GB-TEVA-476105ISR

PATIENT
  Age: 51 Year
  Sex: Female
  Weight: 76.2 kg

DRUGS (17)
  1. CITALOPRAM [Suspect]
     Active Substance: CITALOPRAM HYDROBROMIDE
     Dosage: 40 MILLIGRAM DAILY;
     Route: 048
     Dates: start: 20130404
  2. OMEPRAZOLE. [Suspect]
     Active Substance: OMEPRAZOLE
     Dosage: 20 MG X 28 TABLETS
     Route: 048
     Dates: start: 20130307, end: 20130307
  3. AMOXICILLIN. [Suspect]
     Active Substance: AMOXICILLIN
     Route: 048
     Dates: start: 20130404
  4. CITALOPRAM [Suspect]
     Active Substance: CITALOPRAM HYDROBROMIDE
     Dosage: 40MG, UNK
     Route: 048
     Dates: start: 20090330
  5. LEVOTHYROXINE. [Suspect]
     Active Substance: LEVOTHYROXINE
     Dosage: 100 MCG X 79 TABLETS
     Route: 048
     Dates: start: 20130307, end: 20130307
  6. NAPROXEN. [Suspect]
     Active Substance: NAPROXEN
     Indication: PAIN
     Dosage: 500 MILLIGRAM DAILY; 250 MG, BID
     Route: 048
     Dates: start: 20130307, end: 20130307
  7. SECUKINUMAB (AIN457) [Suspect]
     Active Substance: SECUKINUMAB
     Indication: PSORIASIS
     Dosage: 2 DF (150MG/300MG)
     Route: 058
     Dates: start: 20121214, end: 20130205
  8. SECUKINUMAB (AIN457) [Suspect]
     Active Substance: SECUKINUMAB
     Route: 058
     Dates: start: 20130207
  9. PARACETAMOL [Suspect]
     Active Substance: ACETAMINOPHEN
     Indication: PAIN
     Dosage: 500 MG X 16 TABLET
     Route: 048
     Dates: start: 20130307, end: 20130307
  10. CITALOPRAM [Suspect]
     Active Substance: CITALOPRAM HYDROBROMIDE
     Indication: DEPRESSION
     Dosage: 40 MILLIGRAM DAILY; 40 MG X 36 TABLETS
     Route: 048
     Dates: start: 20130307, end: 20130320
  11. OMEPRAZOLE. [Suspect]
     Active Substance: OMEPRAZOLE
     Indication: DYSPEPSIA
     Dosage: 40 MILLIGRAM DAILY;
     Route: 048
  12. VENLAFAXINE [Concomitant]
     Active Substance: VENLAFAXINE HYDROCHLORIDE
     Indication: ANTIDEPRESSANT THERAPY
     Dosage: 75 MILLIGRAM DAILY; 75MG, QD
     Route: 065
  13. LEVOTHYROXINE. [Suspect]
     Active Substance: LEVOTHYROXINE
     Indication: HYPOTHYROIDISM
     Dosage: 100 MILLIGRAM DAILY; 100MG, QD
     Route: 048
  14. NAPROXEN. [Suspect]
     Active Substance: NAPROXEN
     Dosage: 500 MILLIGRAM DAILY;
     Route: 048
     Dates: start: 20130205, end: 20130307
  15. PARACETAMOL [Suspect]
     Active Substance: ACETAMINOPHEN
     Dosage: 1 GRAM DAILY;
     Route: 048
     Dates: start: 20130205
  16. AMOXICILLIN. [Suspect]
     Active Substance: AMOXICILLIN
     Indication: PRODUCT USED FOR UNKNOWN INDICATION
     Dosage: 50 MG X 20 TABLETS
     Route: 048
     Dates: start: 20130307, end: 20130307
  17. VENLAFAXINE [Concomitant]
     Active Substance: VENLAFAXINE HYDROCHLORIDE
     Dosage: 187.5 MILLIGRAM DAILY; 187.5MG, QD (TITRATED)
     Route: 065

REACTIONS (2)
  - Suicide attempt [Recovered/Resolved]
  - Intentional overdose [Recovered/Resolved]

NARRATIVE: CASE EVENT DATE: 20130307
